FAERS Safety Report 23309515 (Version 1)
Quarter: 2023Q4

REPORT INFORMATION
  Report Type: Spontaneous
  Country: US (occurrence: US)
  Receive Date: 20231218
  Receipt Date: 20231218
  Transmission Date: 20240109
  Serious: No
  Sender: FDA-Public Use
  Company Number: US-PFIZER INC-202300430521

PATIENT
  Age: 58 Year
  Sex: Female
  Weight: 88.435 kg

DRUGS (9)
  1. TIKOSYN [Suspect]
     Active Substance: DOFETILIDE
     Indication: Sinus rhythm
     Dosage: 500 UG
     Dates: start: 20231120
  2. TIKOSYN [Suspect]
     Active Substance: DOFETILIDE
     Dosage: 250 UG
     Dates: start: 202311
  3. TIKOSYN [Suspect]
     Active Substance: DOFETILIDE
     Dosage: 125 UG, 2X/DAY
     Dates: start: 202311
  4. METFORMIN [Concomitant]
     Active Substance: METFORMIN HYDROCHLORIDE
     Indication: Diabetes mellitus
     Dosage: 500 MG, 2X/DAY
  5. METOPROLOL [Concomitant]
     Active Substance: METOPROLOL
     Indication: Blood pressure measurement
     Dosage: 150 MG (100MG IN THE MORNING AND 50MG AT NIGHT)
  6. PLAVIX [Concomitant]
     Active Substance: CLOPIDOGREL BISULFATE
     Indication: Myocardial infarction
     Dosage: 75 MG, 1X/DAY
     Dates: end: 202311
  7. ROSUVASTATIN [Concomitant]
     Active Substance: ROSUVASTATIN
     Indication: Blood cholesterol
     Dosage: 20 MG, 1X/DAY (20MG ONCE AT NIGHT)
  8. ELIQUIS [Concomitant]
     Active Substance: APIXABAN
     Dosage: 5 MG, 2X/DAY
     Dates: start: 202311
  9. LEVOTHYROXINE [Concomitant]
     Active Substance: LEVOTHYROXINE
     Indication: Thyroid disorder
     Dosage: 1.75 UG, DAILY

REACTIONS (5)
  - Eye disorder [Unknown]
  - Asthenia [Unknown]
  - Dizziness [Unknown]
  - Electrocardiogram T wave abnormal [Unknown]
  - Migraine [Unknown]

NARRATIVE: CASE EVENT DATE: 20231101
